FAERS Safety Report 19364677 (Version 1)
Quarter: 2021Q2

REPORT INFORMATION
  Report Type: Spontaneous
  Country: US (occurrence: US)
  Receive Date: 20210602
  Receipt Date: 20210602
  Transmission Date: 20210717
  Serious: Yes (Hospitalization)
  Sender: FDA-Public Use
  Company Number: US-BAUSCH-BL-2021-018268

PATIENT
  Age: 57 Year
  Sex: Male

DRUGS (1)
  1. 5?FLUOROURACIL [Suspect]
     Active Substance: FLUOROURACIL
     Indication: RECTAL ADENOCARCINOMA
     Dosage: FIRST CYCLE
     Route: 065

REACTIONS (2)
  - Myocarditis [Recovered/Resolved]
  - Cardiomyopathy [Recovered/Resolved]
